FAERS Safety Report 17132415 (Version 1)
Quarter: 2019Q4

REPORT INFORMATION
  Report Type: Spontaneous
  Country: US (occurrence: US)
  Receive Date: 20191210
  Receipt Date: 20191210
  Transmission Date: 20200122
  Serious: Yes (Other)
  Sender: FDA-Public Use
  Company Number: US-TEVA-2019-US-1149752

PATIENT
  Age: 45 Year
  Sex: Male

DRUGS (1)
  1. 5 SUB-TENON^S TRIAMCINOLONE [Suspect]
     Active Substance: TRIAMCINOLONE
     Indication: OCULAR SARCOIDOSIS
     Dosage: 40 MG/ML WITH 1ML ADMINISTERED EACH TREATMENT, DELIVERED EVERY 6 WEEKS
     Route: 050

REACTIONS (1)
  - Intraocular pressure increased [Recovered/Resolved]
